FAERS Safety Report 4714919-5 (Version None)
Quarter: 2005Q3

REPORT INFORMATION
  Report Type: 
  Country: None (occurrence: None)
  Receive Date: 20050715
  Receipt Date: 20050705
  Transmission Date: 20060218
  Serious: Yes (Death)
  Sender: FDA-Public Use
  Company Number: JP-NOVOPROD-245334

PATIENT
  Age: 76 Year
  Sex: Male
  Weight: 45 kg

DRUGS (4)
  1. NOVOSEVEN [Suspect]
     Indication: ACQUIRED HAEMOPHILIA
     Dosage: 4.8 MG, SINGLE
     Route: 042
     Dates: start: 20050701, end: 20050701
  2. NOVOSEVEN [Suspect]
     Dosage: 4.8 MG, SINGLE
     Dates: start: 20050702, end: 20050702
  3. NOVOSEVEN [Suspect]
     Dosage: 4.8 MG, AT 2+4+11PM
     Dates: start: 20050703, end: 20050703
  4. BLOOD COAGULATION FACTORS [Concomitant]
     Dates: start: 20050401

REACTIONS (1)
  - ANAEMIA [None]
